FAERS Safety Report 23544606 (Version 2)
Quarter: 2025Q4

REPORT INFORMATION
  Report Type: Spontaneous
  Country: US (occurrence: US)
  Receive Date: 20240220
  Receipt Date: 20251201
  Transmission Date: 20260117
  Serious: No
  Sender: INCYTE
  Company Number: US-INCYTE CORPORATION-2024IN001536

PATIENT
  Age: 73 Year
  Weight: 44.19 kg

DRUGS (2)
  1. JAKAFI [Suspect]
     Active Substance: RUXOLITINIB
     Indication: Essential thrombocythaemia
     Dosage: 15 MILLIGRAM, BID
  2. JAKAFI [Suspect]
     Active Substance: RUXOLITINIB
     Dosage: 10 MILLIGRAM, BID

REACTIONS (7)
  - Onychoclasis [Unknown]
  - Nail discolouration [Unknown]
  - Alopecia [Unknown]
  - Hyperlipidaemia [Unknown]
  - Hypertension [Unknown]
  - Onychomadesis [Unknown]
  - Off label use [Unknown]
